FAERS Safety Report 11599252 (Version 2)
Quarter: 2015Q4

REPORT INFORMATION
  Report Type: Spontaneous
  Country: US (occurrence: US)
  Receive Date: 20151006
  Receipt Date: 20151030
  Transmission Date: 20160304
  Serious: Yes (Death, Other)
  Sender: FDA-Public Use
  Company Number: US-ACTELION-A-US2015-124828

PATIENT
  Age: 62 Year
  Sex: Female

DRUGS (12)
  1. HYDROMORPHONE [Concomitant]
     Active Substance: HYDROMORPHONE
  2. TRAZODONE [Concomitant]
     Active Substance: TRAZODONE HYDROCHLORIDE
  3. OPSUMIT [Suspect]
     Active Substance: MACITENTAN
     Indication: PULMONARY ARTERIAL HYPERTENSION
     Dosage: 10 MG, QD
     Route: 048
     Dates: start: 20150716, end: 20150923
  4. SILDENAFIL. [Concomitant]
     Active Substance: SILDENAFIL
  5. DEMECLOCYCLINE [Concomitant]
     Active Substance: DEMECLOCYCLINE
  6. DIGOXIN. [Concomitant]
     Active Substance: DIGOXIN
  7. HYDROCHLOROTHIAZIDE. [Concomitant]
     Active Substance: HYDROCHLOROTHIAZIDE
  8. TORSEMIDE. [Concomitant]
     Active Substance: TORSEMIDE
  9. VELETRI [Suspect]
     Active Substance: EPOPROSTENOL
     Indication: PULMONARY ARTERIAL HYPERTENSION
     Dosage: 16.8 NG/KG, PER MIN
     Route: 042
     Dates: start: 20141218, end: 20150923
  10. SPIRONOLACTONE. [Concomitant]
     Active Substance: SPIRONOLACTONE
  11. WARFARIN [Concomitant]
     Active Substance: WARFARIN
  12. LISINOPRIL. [Concomitant]
     Active Substance: LISINOPRIL

REACTIONS (3)
  - Concomitant disease progression [Fatal]
  - Scleroderma [Fatal]
  - Cardiac failure [Unknown]

NARRATIVE: CASE EVENT DATE: 20150923
